FAERS Safety Report 9289603 (Version 1)
Quarter: 2013Q2

REPORT INFORMATION
  Report Type: Spontaneous
  Country: US (occurrence: US)
  Receive Date: 20130515
  Receipt Date: 20130515
  Transmission Date: 20140414
  Serious: Yes (Hospitalization)
  Sender: FDA-Public Use
  Company Number: US-BIOGENIDEC-2013BI042432

PATIENT
  Age: 49 Year
  Sex: Female

DRUGS (1)
  1. TYSABRI [Suspect]
     Indication: MULTIPLE SCLEROSIS
     Route: 042
     Dates: start: 20070105, end: 20130329

REACTIONS (4)
  - Hysterectomy [Recovered/Resolved]
  - Uterine disorder [Recovered/Resolved]
  - Endometrial ablation [Recovered/Resolved]
  - Hypertension [Recovered/Resolved]
